FAERS Safety Report 9805732 (Version 1)
Quarter: 2014Q1

REPORT INFORMATION
  Report Type: Spontaneous
  Country: US (occurrence: US)
  Receive Date: 20140109
  Receipt Date: 20140109
  Transmission Date: 20141002
  Serious: No
  Sender: FDA-Public Use
  Company Number: US-009507513-1401USA002516

PATIENT
  Sex: Male

DRUGS (3)
  1. VICTRELIS [Suspect]
     Indication: HEPATITIS C
     Dosage: 4 DF, TID (200 MG, 4 IN 8 HR)
     Route: 048
     Dates: start: 201312
  2. COPEGUS [Suspect]
     Indication: HEPATITIS C
     Dosage: 3 DF, BID (200 MG 3 IN 12 HR)
     Route: 048
     Dates: start: 201312
  3. PEGASYS [Suspect]
     Indication: HEPATITIS C
     Dosage: 1 DF, QW (PROCLICK)
     Route: 058
     Dates: start: 201312

REACTIONS (4)
  - Listless [Recovering/Resolving]
  - Anaemia [Not Recovered/Not Resolved]
  - Influenza [Recovered/Resolved]
  - Asthenia [Recovering/Resolving]
